FAERS Safety Report 9397017 (Version 1)
Quarter: 2013Q3

REPORT INFORMATION
  Report Type: Spontaneous
  Country: US (occurrence: None)
  Receive Date: 20130711
  Receipt Date: 20130711
  Transmission Date: 20140515
  Serious: Yes (Other)
  Sender: FDA-Public Use
  Company Number: None

PATIENT
  Age: 66 Year
  Sex: Female
  Weight: 45 kg

DRUGS (3)
  1. GAMMAKED [Suspect]
     Indication: HYPOGAMMAGLOBULINAEMIA
     Dosage: VARIED
     Route: 042
     Dates: start: 20121231, end: 20130523
  2. ZOLEDRONIC ACID [Concomitant]
  3. FERUMOXYTOL [Concomitant]

REACTIONS (4)
  - Nausea [None]
  - Vomiting [None]
  - Headache [None]
  - Infusion related reaction [None]
